FAERS Safety Report 6000060-0 (Version None)
Quarter: 2008Q4

REPORT INFORMATION
  Report Type: 
  Country: None (occurrence: None)
  Receive Date: 20081215
  Receipt Date: 20081208
  Transmission Date: 20090506
  Serious: Yes (Life-Threatening, Hospitalization, Other)
  Sender: FDA-Public Use
  Company Number: B0545180A

PATIENT
  Age: 7 Year
  Sex: Male
  Weight: 27 kg

DRUGS (2)
  1. LAMICTAL [Suspect]
     Indication: EPILEPSY
     Dosage: 5MG UNKNOWN
     Route: 065
     Dates: start: 20081023, end: 20081030
  2. KEPPRA [Concomitant]
     Indication: EPILEPSY
     Dosage: 100MGML UNKNOWN
     Route: 048

REACTIONS (7)
  - DISORIENTATION [None]
  - GRAND MAL CONVULSION [None]
  - LOSS OF CONSCIOUSNESS [None]
  - MEMORY IMPAIRMENT [None]
  - PRODUCT QUALITY ISSUE [None]
  - SOMNOLENCE [None]
  - URINARY INCONTINENCE [None]
